FAERS Safety Report 23799617 (Version 1)
Quarter: 2024Q2

REPORT INFORMATION
  Report Type: Spontaneous
  Country: JP (occurrence: JP)
  Receive Date: 20240430
  Receipt Date: 20240430
  Transmission Date: 20240716
  Serious: Yes (Other)
  Sender: FDA-Public Use
  Company Number: JP-BAYER-2024A033003

PATIENT
  Age: 75 Year
  Sex: Male
  Weight: 66 kg

DRUGS (8)
  1. XOFIGO [Suspect]
     Active Substance: RADIUM RA-223 DICHLORIDE
     Indication: Prostate cancer metastatic
     Dosage: 55KBQ/KG ONCE, EVERY 4 WEEKS
     Dates: start: 20191115, end: 20200403
  2. XOFIGO [Suspect]
     Active Substance: RADIUM RA-223 DICHLORIDE
     Indication: Metastases to bone
  3. XOFIGO [Suspect]
     Active Substance: RADIUM RA-223 DICHLORIDE
     Indication: Metastases to lymph nodes
  4. CABAZITAXEL [Suspect]
     Active Substance: CABAZITAXEL
     Indication: Prostate cancer
     Dosage: 40MG/BODY(92%)
     Route: 041
     Dates: start: 20210302
  5. CABAZITAXEL [Suspect]
     Active Substance: CABAZITAXEL
     Indication: Prostate cancer
     Dosage: 35MG/BODY(81%)
     Route: 041
     Dates: start: 20210419
  6. CABAZITAXEL [Suspect]
     Active Substance: CABAZITAXEL
     Indication: Prostate cancer
     Dosage: 30MG/BODY?70%?
     Route: 041
     Dates: start: 20210816
  7. CABAZITAXEL [Suspect]
     Active Substance: CABAZITAXEL
     Indication: Prostate cancer
     Dosage: 30MG/BODY?70%?
     Route: 041
     Dates: start: 20211115
  8. LEUPROLIDE ACETATE [Concomitant]
     Active Substance: ISOPROPYL ALCOHOL\LEUPROLIDE ACETATE
     Dosage: UNK
     Dates: start: 20160422

REACTIONS (5)
  - Myelosuppression [Unknown]
  - Febrile neutropenia [None]
  - Febrile neutropenia [None]
  - Febrile neutropenia [None]
  - Febrile neutropenia [None]

NARRATIVE: CASE EVENT DATE: 20210312
